FAERS Safety Report 6140994-X (Version None)
Quarter: 2009Q2

REPORT INFORMATION
  Report Type: 
  Country: None (occurrence: None)
  Receive Date: 20090402
  Receipt Date: 20090401
  Transmission Date: 20091009
  Serious: Yes (Hospitalization)
  Sender: FDA-Public Use
  Company Number: FR-WYE-G01542208

PATIENT
  Sex: Male

DRUGS (10)
  1. RAPAMUNE [Suspect]
     Indication: PROPHYLAXIS AGAINST TRANSPLANT REJECTION
     Route: 048
     Dates: start: 20070501, end: 20070823
  2. COZAAR [Concomitant]
     Route: 048
  3. MODAMIDE [Concomitant]
     Route: 048
  4. CHRONADALATE [Concomitant]
     Route: 048
  5. ZYLORIC [Concomitant]
     Route: 048
  6. REPAGLINIDE [Concomitant]
     Route: 048
  7. TAHOR [Concomitant]
     Route: 048
  8. PARIET [Concomitant]
     Route: 048
  9. LASIX [Concomitant]
     Route: 048
  10. TENORMIN [Concomitant]
     Route: 048

REACTIONS (4)
  - COUGH [None]
  - DYSPNOEA [None]
  - GENERAL PHYSICAL HEALTH DETERIORATION [None]
  - LUNG DISORDER [None]
